FAERS Safety Report 11972868 (Version 1)
Quarter: 2016Q1

REPORT INFORMATION
  Report Type: Spontaneous
  Country: US (occurrence: US)
  Receive Date: 20160128
  Receipt Date: 20160128
  Transmission Date: 20160526
  Serious: No
  Sender: FDA-Public Use
  Company Number: US-INVAGEN PHARMACEUTICALS, INC.-1047039

PATIENT
  Age: 82 Year
  Sex: Female
  Weight: 90 kg

DRUGS (4)
  1. GABAPENTIN. [Suspect]
     Active Substance: GABAPENTIN
     Indication: PAIN IN EXTREMITY
     Route: 048
  2. LEVOTHYROXINE SODIUM. [Concomitant]
     Active Substance: LEVOTHYROXINE SODIUM
  3. METFORMIN [Concomitant]
     Active Substance: METFORMIN HYDROCHLORIDE
     Route: 048
  4. LISINOPRIL 10MG [Concomitant]
     Route: 048

REACTIONS (4)
  - Intentional overdose [None]
  - Sleep disorder [Unknown]
  - Pain in extremity [Unknown]
  - Drug ineffective [Unknown]
